FAERS Safety Report 12639412 (Version 1)
Quarter: 2016Q3

REPORT INFORMATION
  Report Type: Spontaneous
  Country: US (occurrence: None)
  Receive Date: 20160809
  Receipt Date: 20160809
  Transmission Date: 20161109
  Serious: Yes (Other)
  Sender: FDA-Public Use
  Company Number: None

PATIENT
  Age: 35 Year
  Sex: Male
  Weight: 120.93 kg

DRUGS (4)
  1. IBUPROFEN. [Concomitant]
     Active Substance: IBUPROFEN
  2. GABAPENTIN. [Suspect]
     Active Substance: GABAPENTIN
     Indication: CERVICAL RADICULOPATHY
     Dosage: GABAPENTIN?1 CAPSULE EVERY 8 HOURS?TAKEN BY MOUTH
     Route: 048
     Dates: start: 20160720
  3. LISINOPRIL. [Concomitant]
     Active Substance: LISINOPRIL
  4. ADVIL [Concomitant]
     Active Substance: IBUPROFEN

REACTIONS (12)
  - Hallucination [None]
  - Aggression [None]
  - Dizziness [None]
  - Loss of consciousness [None]
  - Drug hypersensitivity [None]
  - Irritability [None]
  - Crying [None]
  - Pain [None]
  - Paranoia [None]
  - Memory impairment [None]
  - Blood pressure fluctuation [None]
  - Fatigue [None]

NARRATIVE: CASE EVENT DATE: 20160729
